FAERS Safety Report 22208522 (Version 1)
Quarter: 2023Q2

REPORT INFORMATION
  Report Type: Report from Study
  Country: NL (occurrence: NL)
  Receive Date: 20230413
  Receipt Date: 20230413
  Transmission Date: 20230722
  Serious: Yes (Other)
  Sender: FDA-Public Use
  Company Number: NL-002147023-NVSC2021NL097639

PATIENT
  Age: 71 Year
  Sex: Female
  Weight: 60 kg

DRUGS (8)
  1. IMATINIB [Suspect]
     Active Substance: IMATINIB
     Indication: Product used for unknown indication
     Dosage: 400 MILLIGRAM (1X400MG)
     Route: 065
     Dates: start: 201209
  2. IMATINIB [Suspect]
     Active Substance: IMATINIB
     Dosage: 200 MILLIGRAM (1X200MG)
     Route: 065
     Dates: start: 201211
  3. IMATINIB [Suspect]
     Active Substance: IMATINIB
     Dosage: 200 MILLIGRAM (1X200MG)
     Route: 065
     Dates: start: 201409
  4. IMATINIB [Suspect]
     Active Substance: IMATINIB
     Dosage: 300 MILLIGRAM (1X300MG)
     Route: 065
     Dates: start: 201503
  5. IMATINIB [Suspect]
     Active Substance: IMATINIB
     Dosage: 400 MILLIGRAM (1X400MG)
     Route: 065
     Dates: start: 201507
  6. PONATINIB [Suspect]
     Active Substance: PONATINIB
     Indication: Product used for unknown indication
     Dosage: 45 MILLIGRAM (1 DD, 45 MG)
     Route: 065
     Dates: start: 201401
  7. PONATINIB [Suspect]
     Active Substance: PONATINIB
     Dosage: UNK
     Route: 065
     Dates: start: 201403
  8. PONATINIB [Suspect]
     Active Substance: PONATINIB
     Dosage: 15 MILLIGRAM (1X15MG)
     Route: 065
     Dates: start: 201406

REACTIONS (5)
  - Thrombocytopenia [Recovered/Resolved]
  - Pancytopenia [Unknown]
  - Cytogenetic analysis abnormal [Recovered/Resolved]
  - Incorrect dose administered [Unknown]
  - Therapeutic product effect incomplete [Unknown]

NARRATIVE: CASE EVENT DATE: 20131001
